FAERS Safety Report 7545044 (Version 3)
Quarter: 2012Q4

REPORT INFORMATION
  Report Type: 
  Country: US (occurrence: US)
  Receive Date: 20100818
  Receipt Date: 20120829
  Transmission Date: 20130627
  Serious: Yes (Hospitalization)
  Sender: FDA-Public Use
  Company Number: US-BAYER-201030659NA

PATIENT
  Age: 46 Year
  Sex: Female
  Weight: 72.56 kg

DRUGS (1)
  1. YASMIN [Suspect]
     Route: 048
     Dates: start: 2001, end: 200203

REACTIONS (4)
  - Pulmonary embolism [Unknown]
  - Deep vein thrombosis [Recovered/Resolved]
  - Deep vein thrombosis [Recovered/Resolved]
  - Thrombophlebitis superficial [None]
